FAERS Safety Report 10984532 (Version 1)
Quarter: 2015Q2

REPORT INFORMATION
  Report Type: Spontaneous
  Country: JP (occurrence: JP)
  Receive Date: 20150403
  Receipt Date: 20150403
  Transmission Date: 20150821
  Serious: Yes (Other)
  Sender: FDA-Public Use
  Company Number: JP-BRISTOL-MYERS SQUIBB COMPANY-BMS-2015-021865

PATIENT
  Age: 50 Year
  Sex: Female

DRUGS (1)
  1. DASATINIB [Suspect]
     Active Substance: DASATINIB
     Indication: ACUTE LYMPHOCYTIC LEUKAEMIA
     Dosage: 20 MG, UNK
     Route: 048

REACTIONS (4)
  - Natural killer cell count increased [Unknown]
  - Neutropenia [Unknown]
  - Pleural effusion [Unknown]
  - Thrombocytopenia [Unknown]
